FAERS Safety Report 4287610-X (Version None)
Quarter: 2004Q1

REPORT INFORMATION
  Report Type: 
  Country: None (occurrence: None)
  Receive Date: 20040209
  Receipt Date: 20030806
  Transmission Date: 20041129
  Serious: Yes (Other)
  Sender: FDA-Public Use
  Company Number: US-GLAXOSMITHKLINE-A0419942A

PATIENT
  Age: 22 Year
  Sex: Female

DRUGS (3)
  1. PAXIL CR [Suspect]
     Indication: ANXIETY
     Route: 048
     Dates: start: 20030601
  2. PAXIL [Suspect]
     Indication: ANXIETY
     Route: 048
  3. ATIVAN [Concomitant]
     Indication: ANXIETY

REACTIONS (6)
  - CRYING [None]
  - DRUG INEFFECTIVE [None]
  - DRUG WITHDRAWAL SYNDROME [None]
  - NAUSEA [None]
  - PARAESTHESIA [None]
  - WEIGHT INCREASED [None]
